FAERS Safety Report 23070299 (Version 1)
Quarter: 2023Q4

REPORT INFORMATION
  Report Type: Spontaneous
  Country: US (occurrence: US)
  Receive Date: 20231016
  Receipt Date: 20231016
  Transmission Date: 20240109
  Serious: Yes (Death, Other)
  Sender: FDA-Public Use
  Company Number: US-SPECGX-T202301999

PATIENT
  Sex: Male

DRUGS (1)
  1. POSACONAZOLE [Suspect]
     Active Substance: POSACONAZOLE
     Indication: Scedosporium infection
     Dosage: UNK
     Route: 065

REACTIONS (9)
  - Respiratory failure [Fatal]
  - Septic shock [Fatal]
  - Haemoptysis [Unknown]
  - Thrombosis [Unknown]
  - Fistula [Unknown]
  - Mycetoma mycotic [Unknown]
  - Therapeutic embolisation [Unknown]
  - Bronchial artery embolisation [Unknown]
  - Interventional procedure [Unknown]
